FAERS Safety Report 5114831-6 (Version None)
Quarter: 2006Q3

REPORT INFORMATION
  Report Type: 
  Country: None (occurrence: None)
  Receive Date: 20060926
  Receipt Date: 20060302
  Transmission Date: 20061208
  Serious: Yes (Death, Other)
  Sender: FDA-Public Use
  Company Number: US-BAYER-200613993BCC

PATIENT
  Age: 44 Year
  Sex: Female
  Weight: 59 kg

DRUGS (1)
  1. RID SHAMPOO + CONDITIONER IN ONE [Suspect]
     Indication: LICE INFESTATION
     Route: 061
     Dates: start: 20060301

REACTIONS (3)
  - CONVULSION [None]
  - HEPATIC CIRRHOSIS [None]
  - PRURITUS [None]
